FAERS Safety Report 20507394 (Version 1)
Quarter: 2022Q1

REPORT INFORMATION
  Report Type: Spontaneous
  Country: US (occurrence: US)
  Receive Date: 20220223
  Receipt Date: 20220223
  Transmission Date: 20220423
  Serious: Yes (Other)
  Sender: FDA-Public Use
  Company Number: US-ALLERGAN-2206276US

PATIENT
  Sex: Female

DRUGS (2)
  1. BYSTOLIC [Suspect]
     Active Substance: NEBIVOLOL HYDROCHLORIDE
     Indication: Blood pressure increased
     Dosage: 2.5 MG, QD
     Dates: start: 202112, end: 20220217
  2. BYSTOLIC [Suspect]
     Active Substance: NEBIVOLOL HYDROCHLORIDE
     Indication: Heart rate abnormal

REACTIONS (11)
  - Respiratory arrest [Unknown]
  - Hypersensitivity [Unknown]
  - Alopecia [Unknown]
  - Gastrooesophageal reflux disease [Unknown]
  - Skin discolouration [Unknown]
  - Hypoaesthesia [Unknown]
  - Wrong technique in product usage process [Unknown]
  - Off label use [Unknown]
  - Weight increased [Unknown]
  - Dyspnoea [Unknown]
  - Product use complaint [Unknown]
